FAERS Safety Report 16121380 (Version 1)
Quarter: 2019Q1

REPORT INFORMATION
  Report Type: Spontaneous
  Country: FR (occurrence: FR)
  Receive Date: 20190327
  Receipt Date: 20190327
  Transmission Date: 20190418
  Serious: Yes (Other)
  Sender: FDA-Public Use
  Company Number: FR-BEH-2019100611

PATIENT
  Age: 67 Year
  Sex: Male

DRUGS (1)
  1. PRIVIGEN [Suspect]
     Active Substance: HUMAN IMMUNOGLOBULIN G
     Indication: POLYNEUROPATHY
     Dosage: UNK
     Route: 041
     Dates: start: 20181203

REACTIONS (3)
  - Skin fissures [Recovering/Resolving]
  - Rash maculo-papular [Recovering/Resolving]
  - Palmar erythema [Recovering/Resolving]

NARRATIVE: CASE EVENT DATE: 20181224
